FAERS Safety Report 5339463-6 (Version None)
Quarter: 2007Q2

REPORT INFORMATION
  Report Type: 
  Country: None (occurrence: None)
  Receive Date: 20070404
  Receipt Date: 20060821
  Transmission Date: 20071010
  Serious: Yes (Other)
  Sender: FDA-Public Use
  Company Number: 2006054341

PATIENT
  Age: 52 Year
  Sex: Female

DRUGS (1)
  1. GEODON [Suspect]
     Indication: BIPOLAR DISORDER
     Dosage: 120 MG (1 IN 1 D), UNKNOWN
     Dates: start: 20060301, end: 20060401

REACTIONS (5)
  - MUSCLE TIGHTNESS [None]
  - PSYCHOMOTOR HYPERACTIVITY [None]
  - SWOLLEN TONGUE [None]
  - TARDIVE DYSKINESIA [None]
  - THROAT TIGHTNESS [None]
